FAERS Safety Report 11617476 (Version 2)
Quarter: 2016Q3

REPORT INFORMATION
  Report Type: Spontaneous
  Country: US (occurrence: US)
  Receive Date: 20151009
  Receipt Date: 20160812
  Transmission Date: 20161109
  Serious: Yes (Other)
  Sender: FDA-Public Use
  Company Number: US-BAYER-2015-434327

PATIENT
  Sex: Male
  Weight: 86.17 kg

DRUGS (3)
  1. CIPROFLOXACIN. [Suspect]
     Active Substance: CIPROFLOXACIN
     Indication: INFECTED DERMAL CYST
     Dosage: 750 MG, BID
     Dates: start: 20121130
  2. TESTOSTERONE. [Concomitant]
     Active Substance: TESTOSTERONE
     Indication: HORMONE THERAPY
     Dosage: ONCE A WEEK 200 MG 7 ML
     Dates: start: 2010
  3. CIPRO [Suspect]
     Active Substance: CIPROFLOXACIN HYDROCHLORIDE
     Dosage: UNK
     Dates: start: 201301

REACTIONS (6)
  - Pain [None]
  - Panic attack [None]
  - Injury [None]
  - Emotional distress [None]
  - Depression [None]
  - Neuropathy peripheral [None]
